FAERS Safety Report 7731921-X (Version None)
Quarter: 2011Q3

REPORT INFORMATION
  Report Type: 
  Country: None (occurrence: None)
  Receive Date: 20110906
  Receipt Date: 20110714
  Transmission Date: 20111222
  Serious: No
  Sender: FDA-Public Use
  Company Number: US-AMGEN-USASP2011029373

PATIENT
  Sex: Female

DRUGS (9)
  1. VITAMIN E                          /00110501/ [Concomitant]
  2. CAT'S CLAW [Concomitant]
  3. CALCIUM CARBONATE [Concomitant]
  4. PROLIA [Suspect]
     Indication: OSTEOPOROSIS POSTMENOPAUSAL
     Dosage: UNK UNK, Q6MO
     Dates: start: 20110519
  5. SYNTHROID [Concomitant]
  6. MULTIVITAMIN                       /00097801/ [Concomitant]
  7. PROBIOTICA [Concomitant]
  8. HYZAAR [Concomitant]
  9. VITAMIN C                          /00008001/ [Concomitant]

REACTIONS (6)
  - ERYTHEMA [None]
  - CATARACT [None]
  - PRURITUS [None]
  - TOOTH ABSCESS [None]
  - RASH [None]
  - INFECTION [None]
